FAERS Safety Report 18757629 (Version 1)
Quarter: 2021Q1

REPORT INFORMATION
  Report Type: Spontaneous
  Country: BR (occurrence: BR)
  Receive Date: 20210119
  Receipt Date: 20210119
  Transmission Date: 20210419
  Serious: Yes (Death)
  Sender: FDA-Public Use
  Company Number: BR-PFIZER INC-2021013400

PATIENT
  Age: 5 Year
  Sex: Female

DRUGS (14)
  1. AMOXICILLIN. [Suspect]
     Active Substance: AMOXICILLIN
     Indication: PSEUDOMONAS INFECTION
  2. AMOXICILIN/CLAVULANIC ACID KRKA [Suspect]
     Active Substance: AMOXICILLIN\CLAVULANIC ACID
     Indication: STAPHYLOCOCCAL INFECTION
     Dosage: UNK
  3. RIFAMPICIN [Suspect]
     Active Substance: RIFAMPIN
     Indication: LEISHMANIASIS
     Dosage: 20 MG, ALTERNATE DAYS (23 DAYS)
  4. VANCOMYCIN HCL [Suspect]
     Active Substance: VANCOMYCIN HYDROCHLORIDE
     Indication: PSEUDOMONAS INFECTION
  5. AMOXICILIN/CLAVULANIC ACID KRKA [Suspect]
     Active Substance: AMOXICILLIN\CLAVULANIC ACID
     Indication: PSEUDOMONAS INFECTION
  6. PYRAZINAMIDE CF [Suspect]
     Active Substance: PYRAZINAMIDE
     Indication: LEISHMANIASIS
     Dosage: 20 MG, ALTERNATE DAYS (23 DAYS)
  7. AMPHOTERICIN B. [Suspect]
     Active Substance: AMPHOTERICIN B
     Indication: LEISHMANIASIS
     Dosage: 517 MG (LIPOSOMAL)
  8. VANCOMYCIN HCL [Suspect]
     Active Substance: VANCOMYCIN HYDROCHLORIDE
     Indication: STAPHYLOCOCCAL INFECTION
     Dosage: UNK
  9. CIPROFLOXACIN. [Suspect]
     Active Substance: CIPROFLOXACIN
     Indication: PSEUDOMONAS INFECTION
  10. AMOXICILLIN. [Suspect]
     Active Substance: AMOXICILLIN
     Indication: STAPHYLOCOCCAL INFECTION
     Dosage: UNK
  11. CIPROFLOXACIN. [Suspect]
     Active Substance: CIPROFLOXACIN
     Indication: STAPHYLOCOCCAL INFECTION
     Dosage: UNK
  12. IMIPENEM [Suspect]
     Active Substance: IMIPENEM
     Indication: PSEUDOMONAS INFECTION
     Dosage: UNK
  13. IMIPENEM [Suspect]
     Active Substance: IMIPENEM
     Indication: STAPHYLOCOCCAL INFECTION
  14. ISONIAZID. [Suspect]
     Active Substance: ISONIAZID
     Indication: LEISHMANIASIS
     Dosage: 20 MG, ALTERNATE DAYS (23 DAYS)

REACTIONS (2)
  - Pathogen resistance [Fatal]
  - Drug ineffective [Fatal]
